FAERS Safety Report 7342656-X (Version None)
Quarter: 2011Q1

REPORT INFORMATION
  Report Type: 
  Country: None (occurrence: None)
  Receive Date: 20110310
  Receipt Date: 20110217
  Transmission Date: 20110831
  Serious: Yes (Hospitalization, Other)
  Sender: FDA-Public Use
  Company Number: US-BAYER-200943255NA

PATIENT
  Sex: Female
  Weight: 55 kg

DRUGS (10)
  1. VALTREX [Concomitant]
     Dates: start: 20080101, end: 20090101
  2. SIMVASTATIN [Concomitant]
     Dates: start: 20090201
  3. MEDROXYPROGESTERONE [Concomitant]
     Dates: start: 20090101
  4. YAZ [Suspect]
     Indication: CONTRACEPTION
  5. IBUPROFEN [Concomitant]
     Dates: start: 20060101
  6. LEVAQUIN [Concomitant]
     Dates: start: 20090203
  7. YAZ [Suspect]
     Indication: ACNE
     Dosage: 1 DF (DAILY DOSE), , ORAL
     Route: 048
     Dates: start: 20080212, end: 20090202
  8. MEDROXYPROGESTERONE [Concomitant]
     Dosage: UNK
     Dates: start: 20090801
  9. TAMIFLU [Concomitant]
     Dates: start: 20090101
  10. CLEOCIN [Concomitant]
     Route: 067
     Dates: start: 20090101

REACTIONS (9)
  - HEMIANOPIA HOMONYMOUS [None]
  - HEMIPARESIS [None]
  - VOMITING [None]
  - CEREBRAL INFARCTION [None]
  - DYSKINESIA [None]
  - VISUAL ACUITY REDUCED [None]
  - NAUSEA [None]
  - CEREBELLAR INFARCTION [None]
  - HEMICEPHALALGIA [None]
